FAERS Safety Report 15473808 (Version 1)
Quarter: 2018Q4

REPORT INFORMATION
  Report Type: Report from Study
  Country: None (occurrence: AT)
  Receive Date: 20181008
  Receipt Date: 20181008
  Transmission Date: 20190205
  Serious: Yes (Death)
  Sender: FDA-Public Use
  Company Number: AT-ABBVIE-18S-009-2512084-00

PATIENT
  Age: 81 Year
  Sex: Female

DRUGS (1)
  1. DUODOPA [Suspect]
     Active Substance: CARBIDOPA\LEVODOPA
     Indication: PARKINSON^S DISEASE
     Dosage: 16H THERAPY: MD: 10ML, CR DAYTIME: 4.8ML/H, ED: 2.2ML
     Route: 050
     Dates: start: 20120717

REACTIONS (1)
  - Death [Fatal]

NARRATIVE: CASE EVENT DATE: 20180923
